FAERS Safety Report 8869173 (Version 2)
Quarter: 2012Q4

REPORT INFORMATION
  Report Type: Spontaneous
  Country: CN (occurrence: None)
  Receive Date: 20121022
  Receipt Date: 20121023
  Transmission Date: 20130627
  Serious: Yes (Hospitalization, Other)
  Sender: FDA-Public Use
  Company Number: DSA_60208_2012

PATIENT
  Age: 53 Year
  Sex: Female

DRUGS (6)
  1. FLUOROURACIL (FLUOROURACIL) [Suspect]
     Indication: GASTRIC CANCER
     Dosage: Over 24 hours Intravenous drip
     Route: 041
  2. CALCIUM FOLINATE [Suspect]
     Indication: GASTRIC CANCER
     Route: 041
  3. DOCETAXEL [Suspect]
     Indication: GASTRIC CANCER
     Route: 041
  4. GIMERACIL/ OTERACIL POTASSIUM/ TEGAFUR [Concomitant]
  5. CIMETIDINE [Concomitant]
  6. DEXAMETHASONE [Concomitant]

REACTIONS (9)
  - Fatigue [None]
  - Palmar-plantar erythrodysaesthesia syndrome [None]
  - Bone marrow failure [None]
  - Decreased appetite [None]
  - Oropharyngeal pain [None]
  - Pyrexia [None]
  - Pigmentation disorder [None]
  - Pantoea agglomerans infection [None]
  - Pharyngeal ulceration [None]
